FAERS Safety Report 23414153 (Version 1)
Quarter: 2024Q1

REPORT INFORMATION
  Report Type: Spontaneous
  Country: GB (occurrence: GB)
  Receive Date: 20240117
  Receipt Date: 20240117
  Transmission Date: 20240410
  Serious: Yes (Other)
  Sender: FDA-Public Use
  Company Number: None

PATIENT

DRUGS (17)
  1. IBUPROFEN [Suspect]
     Active Substance: IBUPROFEN
     Indication: Product used for unknown indication
     Dosage: 400 MG
     Dates: start: 20240103
  2. DILTIAZEM [Concomitant]
     Active Substance: DILTIAZEM
     Indication: Product used for unknown indication
     Dosage: 1 DF, BID
     Dates: start: 20230710
  3. ALLOPURINOL [Concomitant]
     Active Substance: ALLOPURINOL
     Indication: Product used for unknown indication
     Dosage: 1 DF, QD
     Dates: start: 20230502
  4. APIXABAN [Concomitant]
     Active Substance: APIXABAN
     Indication: Product used for unknown indication
     Dosage: 1 DF, BID
     Dates: start: 20230502
  5. NON-MEDICINAL PRODUCTS [Concomitant]
     Indication: Product used for unknown indication
     Dosage: UNK (APPLY TWO TO FOUR TIMES A DAY AND/OR WHEN REQUIRED)
     Dates: start: 20230725
  6. NON-MEDICINAL PRODUCTS [Concomitant]
     Dosage: UNK (NIGHTLY AS PER OPHTHALMOLOGY)
     Dates: start: 20230502
  7. BISOPROLOL [Concomitant]
     Active Substance: BISOPROLOL\BISOPROLOL FUMARATE
     Indication: Product used for unknown indication
     Dosage: 1 DF, QD
     Dates: start: 20230502
  8. COCODAMOL [Concomitant]
     Active Substance: ACETAMINOPHEN\CODEINE PHOSPHATE
     Indication: Product used for unknown indication
     Dosage: UNK UNK, QID (TAKE TWO UP TO 4 TIMES/DAY)
     Dates: start: 20230502
  9. DOXYCYCLINE [Concomitant]
     Active Substance: DOXYCYCLINE
     Indication: Product used for unknown indication
     Dosage: UNK (TAKE TWO CAPSULES NOW THEN ONE CAPSULE ONCE A DAY)
     Dates: start: 20231127, end: 20231204
  10. EPIPEN [Concomitant]
     Active Substance: EPINEPHRINE
     Indication: Product used for unknown indication
     Dosage: UNK (FOR PATIENTS OVER 25KG : USE AS DIRECTED. (CONT)
     Dates: start: 20231214
  11. BECLOMETHASONE\FORMOTEROL [Concomitant]
     Active Substance: BECLOMETHASONE\FORMOTEROL
     Indication: Product used for unknown indication
     Dosage: 1 DF, BID
     Dates: start: 20230725
  12. HYDROCORTISONE [Concomitant]
     Active Substance: HYDROCORTISONE
     Indication: Product used for unknown indication
     Dosage: 1 DF, BID (FOR A 1-2 WEEK COURSE, FOR NO...)
     Route: 061
     Dates: start: 20231122, end: 20231206
  13. IBUPROFEN [Concomitant]
     Active Substance: IBUPROFEN
     Indication: Pain
     Dosage: UNK (APPLY UP TO THREE TIMES/DAY, FOR PAIN. STOP IF ...)
     Route: 061
     Dates: start: 20240103
  14. CYCLOSPORINE [Concomitant]
     Active Substance: CYCLOSPORINE
     Indication: Product used for unknown indication
     Dosage: 1 GTT, QD
     Dates: start: 20230502
  15. MOMETASONE [Concomitant]
     Active Substance: MOMETASONE
     Indication: Product used for unknown indication
     Dosage: 1 DF, QD (APPLY TO THE BODY FOR 2 WEEKS, THEN ...)
     Route: 061
     Dates: start: 20231122
  16. OMEPRAZOLE [Concomitant]
     Active Substance: OMEPRAZOLE
     Indication: Product used for unknown indication
     Dosage: 1 DF, QD (TO PROTECT THE STOM...)
     Dates: start: 20231019
  17. TACROLIMUS [Concomitant]
     Active Substance: TACROLIMUS
     Indication: Product used for unknown indication
     Dosage: 1 DF, QD (APPLY TO THE FACE ONCE DAILY FOR 4 WEEKS, THEN ...)
     Route: 061
     Dates: start: 20231122

REACTIONS (2)
  - Dyspnoea [Recovered/Resolved]
  - Hypertension [Recovered/Resolved]

NARRATIVE: CASE EVENT DATE: 20240110
